FAERS Safety Report 12896545 (Version 1)
Quarter: 2016Q4

REPORT INFORMATION
  Report Type: Spontaneous
  Country: US (occurrence: US)
  Receive Date: 20161028
  Receipt Date: 20161028
  Transmission Date: 20170207
  Serious: Yes (Other)
  Sender: FDA-Public Use
  Company Number: None

PATIENT
  Age: 86 Year
  Sex: Female
  Weight: 86 kg

DRUGS (5)
  1. ALPRAX [Concomitant]
  2. PANTOCID [Concomitant]
  3. HERBAL PRODUCT [Concomitant]
  4. CALCIUM [Concomitant]
     Active Substance: CALCIUM
  5. RIBAVARIN [Suspect]
     Active Substance: RIBAVIRIN
     Indication: HEPATITIS C
     Route: 048
     Dates: start: 20160927, end: 20161015

REACTIONS (3)
  - Vision blurred [None]
  - Therapy cessation [None]
  - Vitreous floaters [None]

NARRATIVE: CASE EVENT DATE: 20161023
